FAERS Safety Report 14226500 (Version 1)
Quarter: 2017Q4

REPORT INFORMATION
  Report Type: Report from Study
  Country: US (occurrence: US)
  Receive Date: 20171127
  Receipt Date: 20171127
  Transmission Date: 20180321
  Serious: Yes (Death, Other)
  Sender: FDA-Public Use
  Company Number: US-BAYER-2016-083149

PATIENT
  Age: 62 Year
  Sex: Female

DRUGS (6)
  1. GABAPENTIN. [Concomitant]
     Active Substance: GABAPENTIN
  2. ZOLOFT [Concomitant]
     Active Substance: SERTRALINE HYDROCHLORIDE
  3. BETASERON [Suspect]
     Active Substance: INTERFERON BETA-1B
     Indication: MULTIPLE SCLEROSIS
     Dosage: 1 ML, QOD
     Route: 058
     Dates: start: 20140217, end: 20161101
  4. BETACONNECT [Suspect]
     Active Substance: DEVICE
  5. LISINOPRIL. [Concomitant]
     Active Substance: LISINOPRIL
  6. BETASERON [Suspect]
     Active Substance: INTERFERON BETA-1B
     Indication: MULTIPLE SCLEROSIS
     Dosage: UNK
     Dates: start: 20011219, end: 20140117

REACTIONS (3)
  - Death [Fatal]
  - Injection site pain [Recovered/Resolved]
  - Carpal tunnel syndrome [None]

NARRATIVE: CASE EVENT DATE: 20160408
